FAERS Safety Report 9642808 (Version 1)
Quarter: 2013Q4

REPORT INFORMATION
  Report Type: Spontaneous
  Country: US (occurrence: US)
  Receive Date: 20131024
  Receipt Date: 20131024
  Transmission Date: 20140711
  Serious: Yes (Other)
  Sender: FDA-Public Use
  Company Number: US-BAYER-2013-127593

PATIENT
  Sex: Female

DRUGS (4)
  1. SKYLA [Suspect]
     Dosage: UNK
  2. AMOXICILLIN [Concomitant]
     Indication: TONSILLITIS
  3. AMOXICILLIN [Concomitant]
     Indication: MULTIPLE ALLERGIES
  4. AMOXICILLIN [Concomitant]
     Indication: SINUSITIS

REACTIONS (3)
  - Vaginal haemorrhage [None]
  - Genital haemorrhage [None]
  - Amenorrhoea [None]
